FAERS Safety Report 12928642 (Version 2)
Quarter: 2016Q4

REPORT INFORMATION
  Report Type: Report from Study
  Country: US (occurrence: US)
  Receive Date: 20161110
  Receipt Date: 20161220
  Transmission Date: 20170207
  Serious: No
  Sender: FDA-Public Use
  Company Number: US-AMGEN-USASL2016156647

PATIENT
  Age: 81 Year
  Sex: Female

DRUGS (1)
  1. ENBREL [Suspect]
     Active Substance: ETANERCEPT
     Indication: RHEUMATOID ARTHRITIS
     Dosage: 50 MG, ONCE WEEKLY
     Route: 065
     Dates: start: 20160926

REACTIONS (10)
  - Drug dose omission [Unknown]
  - Cough [Unknown]
  - Oropharyngeal pain [Unknown]
  - Facial pain [Recovering/Resolving]
  - Nasopharyngitis [Unknown]
  - Eye disorder [Recovering/Resolving]
  - Body temperature increased [Unknown]
  - Arthralgia [Unknown]
  - Headache [Unknown]
  - Rhinorrhoea [Unknown]

NARRATIVE: CASE EVENT DATE: 201610
